FAERS Safety Report 9410704 (Version 2)
Quarter: 2013Q3

REPORT INFORMATION
  Report Type: Spontaneous
  Country: US (occurrence: US)
  Receive Date: 20130719
  Receipt Date: 20130828
  Transmission Date: 20140515
  Serious: Yes (Hospitalization, Disabling, Other)
  Sender: FDA-Public Use
  Company Number: US-009507513-1103USA00912

PATIENT
  Sex: Female
  Weight: 53.61 kg

DRUGS (3)
  1. FOSAMAX [Suspect]
     Indication: OSTEOPENIA
     Dosage: 70 MG, QW
     Route: 048
     Dates: start: 19991206, end: 20080206
  2. FOSAMAX [Suspect]
     Dosage: 10 MG, QD
     Route: 048
  3. ALENDRONATE SODIUM [Suspect]
     Indication: OSTEOPENIA
     Dosage: 70 MG, QW
     Route: 048
     Dates: start: 20080206, end: 20100530

REACTIONS (31)
  - Femur fracture [Recovered/Resolved]
  - Open reduction of fracture [Recovered/Resolved]
  - Intramedullary rod insertion [Recovered/Resolved]
  - Femur fracture [Unknown]
  - Fracture [Unknown]
  - Osteoporosis [Unknown]
  - Stress fracture [Unknown]
  - Low turnover osteopathy [Unknown]
  - Breast cancer [Unknown]
  - Breast lump removal [Unknown]
  - Lymphadenectomy [Unknown]
  - Femur fracture [Recovered/Resolved]
  - Musculoskeletal pain [Not Recovered/Not Resolved]
  - Pain in extremity [Not Recovered/Not Resolved]
  - Pain in extremity [Not Recovered/Not Resolved]
  - Rheumatoid arthritis [Unknown]
  - Adverse event [Unknown]
  - Adverse event [Unknown]
  - Hypertension [Unknown]
  - Hyperparathyroidism [Unknown]
  - Eschar [Unknown]
  - Tendonitis [Not Recovered/Not Resolved]
  - Haematoma [Recovering/Resolving]
  - Osteoporosis [Unknown]
  - Poor quality sleep [Unknown]
  - Adverse drug reaction [Recovering/Resolving]
  - Lung disorder [Unknown]
  - Glaucoma [Unknown]
  - Endometrial hyperplasia [Unknown]
  - Constipation [Unknown]
  - Nausea [Unknown]
